FAERS Safety Report 4325952-X (Version None)
Quarter: 2004Q1

REPORT INFORMATION
  Report Type: 
  Country: None (occurrence: None)
  Receive Date: 20040323
  Receipt Date: 20040315
  Transmission Date: 20041129
  Serious: Yes (Hospitalization)
  Sender: FDA-Public Use
  Company Number: 2004-02-1766

PATIENT
  Sex: Female

DRUGS (1)
  1. PROVENTIL-HFA [Suspect]
     Dosage: ORAL AFR INH
     Route: 055

REACTIONS (2)
  - MALAISE [None]
  - PHARMACEUTICAL PRODUCT COMPLAINT [None]
